FAERS Safety Report 5459971-7 (Version None)
Quarter: 2007Q3

REPORT INFORMATION
  Report Type: 
  Country: None (occurrence: None)
  Receive Date: 20070919
  Receipt Date: 20070504
  Transmission Date: 20080115
  Serious: No
  Sender: FDA-Public Use
  Company Number: US-ASTRAZENECA-2007UW09656

PATIENT
  Age: 53 Year
  Sex: Male
  Weight: 158 kg

DRUGS (9)
  1. SEROQUEL [Suspect]
     Indication: SCHIZOAFFECTIVE DISORDER
     Route: 048
  2. SEROQUEL [Suspect]
     Route: 048
  3. NIACIN [Concomitant]
  4. POTASSIUM CHLORIDE [Concomitant]
  5. HALDOL [Concomitant]
     Route: 058
  6. INHALER [Concomitant]
  7. RANITIDINE [Concomitant]
  8. VITAMIN B-12 [Concomitant]
  9. LORAZEPAM [Concomitant]

REACTIONS (1)
  - DRUG LEVEL DECREASED [None]
